FAERS Safety Report 5214749-4 (Version None)
Quarter: 2007Q1

REPORT INFORMATION
  Report Type: 
  Country: None (occurrence: None)
  Receive Date: 20070122
  Receipt Date: 20070110
  Transmission Date: 20070707
  Serious: Yes (Life-Threatening, Hospitalization)
  Sender: FDA-Public Use
  Company Number: IT-SHR-IT-2007-000975

PATIENT
  Age: 55 Year
  Sex: Female
  Weight: 50 kg

DRUGS (8)
  1. CAMPATH [Suspect]
     Indication: HAEMATOLOGICAL MALIGNANCY
     Dosage: CUMULATIVE DOSE GIVEN: 223MG
     Route: 042
  2. ACYCLOVIR [Concomitant]
     Dosage: 400 MG, 3X/DAY
     Route: 048
     Dates: start: 20061024
  3. AMOXICILLIN W/CLAVULANIC ACID [Concomitant]
     Dosage: 1000 MG, 2X/DAY
     Route: 048
     Dates: start: 20061222, end: 20061228
  4. BACTRIM [Concomitant]
     Dosage: 1 CP X 2/DIE X 3/WEEK
     Route: 048
     Dates: start: 20061024
  5. CIPROFLOXACIN [Concomitant]
     Dosage: 500 MGX2/DIE
     Route: 048
     Dates: start: 20061222, end: 20061228
  6. EUTIROX [Concomitant]
     Dosage: 75 A?G, 1X/DAY
     Route: 048
     Dates: start: 19860101
  7. PARIET [Concomitant]
     Dosage: 20 MG, 1X/DAY
     Route: 048
     Dates: start: 20061117
  8. FLUDARA 50 MG (SH L 573 A) [Suspect]
     Indication: HAEMATOLOGICAL MALIGNANCY
     Dosage: CUMULATIVE DOSE GIVEN: 270MG
     Route: 042

REACTIONS (1)
  - RENAL FAILURE ACUTE [None]
